FAERS Safety Report 19656320 (Version 1)
Quarter: 2021Q3

REPORT INFORMATION
  Report Type: Spontaneous
  Country: FR (occurrence: FR)
  Receive Date: 20210804
  Receipt Date: 20210804
  Transmission Date: 20211014
  Serious: Yes (Hospitalization)
  Sender: FDA-Public Use
  Company Number: FR-TEVA-2021-FR-1938829

PATIENT
  Age: 74 Year
  Sex: Female
  Weight: 95 kg

DRUGS (10)
  1. SYMBICORT [Concomitant]
     Active Substance: BUDESONIDE\FORMOTEROL FUMARATE DIHYDRATE
     Dosage: 2 DF, THERAPY START DATE: ASKU
     Route: 055
  2. UVEDOSE [Concomitant]
     Active Substance: CHOLECALCIFEROL
     Dosage: 1 DF, THERAPY START DATE: ASKU
     Route: 048
  3. MONOPROST 50 MICROGRAMMES/ML, COLLYRE EN SOLUTION EN RECIPIENT UNIDOSE [Concomitant]
     Active Substance: LATANOPROST
     Dosage: IN SINGLE?DOSE CONTAINER, 1 GTT, THERAPY START DATE: ASKU
     Route: 047
  4. INEXIUM 20 MG, COMPRIME GASTRO?RESISTANT [Suspect]
     Active Substance: ESOMEPRAZOLE
     Indication: DYSPEPSIA
     Dosage: 1 DF
     Route: 048
     Dates: start: 202011, end: 20210603
  5. RENITEC 20 MG, COMPRIME SECABLE [Suspect]
     Active Substance: ENALAPRIL MALEATE
     Indication: HYPERTENSION
     Dosage: SCORED TABLET, 1 DF, THERAPY START DATE: ASKU
     Route: 048
     Dates: end: 20210603
  6. LASILIX 40 MG, COMPRIME SECABLE [Suspect]
     Active Substance: FUROSEMIDE
     Indication: HYPERTENSION
     Dosage: SCORED TABLET, 1 DF, THERAPY START DATE: ASKU
     Route: 048
     Dates: end: 20210603
  7. CORDARONE [Concomitant]
     Active Substance: AMIODARONE HYDROCHLORIDE
     Dosage: 1 DF
     Route: 048
     Dates: start: 202011
  8. FENOFIBRATE. [Suspect]
     Active Substance: FENOFIBRATE
     Indication: HYPERCHOLESTEROLAEMIA
     Dosage: 300 MG, THERAPY START DATE: ASKU
     Route: 048
     Dates: end: 20210603
  9. DOLIPRANE [Concomitant]
     Active Substance: ACETAMINOPHEN
     Dosage: 1 G, THERAPY START AND END DATE: ASKU
     Route: 048
  10. DIFFU K, GELULE [Concomitant]
     Active Substance: POTASSIUM CHLORIDE
     Dosage: 600 MG, THERAPY START DATE: ASKU
     Route: 048
     Dates: end: 20210603

REACTIONS (1)
  - Renal tubular necrosis [Not Recovered/Not Resolved]

NARRATIVE: CASE EVENT DATE: 202106
